FAERS Safety Report 11841482 (Version 4)
Quarter: 2025Q3

REPORT INFORMATION
  Report Type: Report from Study
  Country: US (occurrence: US)
  Receive Date: 20151216
  Receipt Date: 20250807
  Transmission Date: 20251021
  Serious: Yes (Hospitalization, Other)
  Sender: UCB
  Company Number: US-UCBSA-2015039783

PATIENT
  Age: 36 Year
  Sex: Female
  Weight: 47.7 kg

DRUGS (25)
  1. CERTOLIZUMAB PEGOL [Suspect]
     Active Substance: CERTOLIZUMAB PEGOL
     Indication: Crohn^s disease
     Dosage: 400 MG, MONTHLY (QM) (INJECTED)
     Dates: start: 20110701, end: 20151220
  2. IMURAN [Concomitant]
     Active Substance: AZATHIOPRINE
     Indication: Crohn^s disease
     Dosage: 100 MG, ONCE DAILY (QD)
     Dates: start: 20150329, end: 20151220
  3. CYTOGAM [Concomitant]
     Active Substance: HUMAN CYTOMEGALOVIRUS IMMUNE GLOBULIN
     Indication: Cytomegalovirus infection
     Dosage: 150 MG/KG, MONTHLY (QM)
     Route: 042
     Dates: start: 20150714, end: 20151201
  4. MINERALS\VITAMINS [Concomitant]
     Active Substance: MINERALS\VITAMINS
     Indication: Product used for unknown indication
     Dosage: 2 DF, ONCE DAILY (QD) (2 PILL AT ONCE)
     Route: 048
     Dates: start: 20150329, end: 20151220
  5. FOLIC ACID [Concomitant]
     Active Substance: FOLIC ACID
     Indication: Product used for unknown indication
     Dosage: 4000 ?G, ONCE DAILY (QD)
     Route: 048
     Dates: start: 20150329, end: 20151220
  6. CHOLECALCIFEROL [Concomitant]
     Active Substance: CHOLECALCIFEROL
     Indication: Product used for unknown indication
     Dosage: 2000 IU, ONCE DAILY (QD)
     Route: 048
     Dates: start: 20150329, end: 20151006
  7. FISH OIL [Concomitant]
     Active Substance: FISH OIL
     Indication: Product used for unknown indication
     Dosage: 2 DF, ONCE DAILY (QD)
     Route: 048
     Dates: start: 20150329, end: 20151220
  8. HYDROXOCOBALAMIN [Concomitant]
     Active Substance: HYDROXOCOBALAMIN
     Indication: Product used for unknown indication
     Dosage: 500 MG, ONCE DAILY (QD)
     Route: 048
     Dates: start: 20150329, end: 20151220
  9. CAFFEINE [Concomitant]
     Active Substance: CAFFEINE
     Indication: Product used for unknown indication
     Route: 048
     Dates: start: 20150427, end: 20151220
  10. CAFFEINE [Concomitant]
     Active Substance: CAFFEINE
     Route: 048
     Dates: start: 20150329, end: 20150426
  11. ZITHROMAX [Concomitant]
     Active Substance: AZITHROMYCIN DIHYDRATE
     Indication: Viral infection
     Dosage: 2 DF, ONCE DAILY (QD) (2 PILL 1 DAY)
     Route: 048
     Dates: start: 20150523, end: 20150523
  12. ZITHROMAX [Concomitant]
     Active Substance: AZITHROMYCIN DIHYDRATE
     Indication: Pertussis
     Dosage: 1 DF, ONCE DAILY (QD) (1 PILL 1 DAY)
     Route: 048
     Dates: start: 20150524, end: 20150527
  13. ZITHROMAX [Concomitant]
     Active Substance: AZITHROMYCIN DIHYDRATE
     Dosage: 2 DF, ONCE DAILY (QD) (2 PILL 1 DAY)
     Route: 048
     Dates: start: 20151111, end: 20151111
  14. ZITHROMAX [Concomitant]
     Active Substance: AZITHROMYCIN DIHYDRATE
     Dosage: 1 DF, ONCE DAILY (QD) (1 PILL 1 DAY)
     Route: 048
     Dates: start: 20151112, end: 20151115
  15. NITROFURANTOIN [Concomitant]
     Active Substance: NITROFURANTOIN
     Indication: Urinary tract infection
     Dosage: 2 DF, ONCE DAILY (QD) (2 PILL 1 DAY)
     Route: 048
     Dates: start: 20150601, end: 20150607
  16. TYLENOL [Concomitant]
     Active Substance: ACETAMINOPHEN
     Indication: Nephrolithiasis
     Route: 048
     Dates: start: 20151006, end: 20151030
  17. FLUARIX NOS [Concomitant]
     Active Substance: INFLUENZA VIRUS VACCINE
     Indication: Product used for unknown indication
     Dosage: 1 DF, ONCE DAILY (QD) (1 SHOT)
     Dates: start: 20150929, end: 20150929
  18. DIPHTHERIA AND TETANUS TOXOIDS AND PERTUSSIS VACCINE [Concomitant]
     Active Substance: DIPHTHERIA AND TETANUS TOXOIDS AND PERTUSSIS VACCINE
     Indication: Obstetric infection
     Dosage: 1 DF, ONCE DAILY (QD) (1 SHOT 1 DAY)
     Dates: start: 20150306, end: 20150306
  19. DIPHTHERIA AND TETANUS TOXOIDS AND PERTUSSIS VACCINE [Concomitant]
     Active Substance: DIPHTHERIA AND TETANUS TOXOIDS AND PERTUSSIS VACCINE
     Indication: Product used for unknown indication
     Dosage: 1 DF, ONCE DAILY (QD) (1 SHOT 1 DAY)
     Dates: start: 20150403, end: 20150403
  20. DIPHTHERIA AND TETANUS TOXOIDS AND PERTUSSIS VACCINE [Concomitant]
     Active Substance: DIPHTHERIA AND TETANUS TOXOIDS AND PERTUSSIS VACCINE
     Dosage: 1 DF, ONCE DAILY (QD) (1 SHOT 1 DAY)
     Dates: start: 20151011, end: 20151011
  21. ONDANSETRON [Concomitant]
     Active Substance: ONDANSETRON
     Indication: Nausea
     Dosage: 24 MILLIGRAM, ONCE DAILY (QD)
     Route: 048
     Dates: start: 20151006, end: 20151030
  22. ONDANSETRON [Concomitant]
     Active Substance: ONDANSETRON
     Indication: Renal pain
  23. PERCOCET [Concomitant]
     Active Substance: ACETAMINOPHEN\OXYCODONE HYDROCHLORIDE
     Indication: Product used for unknown indication
     Dates: start: 20151006, end: 20151008
  24. INDOMETHACIN [Concomitant]
     Active Substance: INDOMETHACIN
     Indication: Product used for unknown indication
     Dates: start: 20151014, end: 20151017
  25. BETAMETHASONE [Concomitant]
     Active Substance: BETAMETHASONE
     Indication: Product used for unknown indication
     Dates: start: 20151014, end: 20151017

REACTIONS (3)
  - Nephrolithiasis [Unknown]
  - Polyhydramnios [Unknown]
  - Maternal exposure before pregnancy [Unknown]

NARRATIVE: CASE EVENT DATE: 20150412
